FAERS Safety Report 5503871-0 (Version None)
Quarter: 2007Q4

REPORT INFORMATION
  Report Type: 
  Country: None (occurrence: None)
  Receive Date: 20071101
  Receipt Date: 20071026
  Transmission Date: 20080405
  Serious: Yes (Other)
  Sender: FDA-Public Use
  Company Number: US-ALLERGAN-0711906US

PATIENT
  Sex: Female

DRUGS (4)
  1. BOTOX [Suspect]
     Indication: DRUG USE FOR UNKNOWN INDICATION
     Dosage: UNK, SINGLE
     Route: 065
  2. BOTOX [Suspect]
     Dosage: UNK, SINGLE
     Route: 065
  3. BOTOX [Suspect]
     Dosage: UNK, SINGLE
     Route: 065
  4. BOTOX [Suspect]
     Dosage: UNK, SINGLE
     Route: 065

REACTIONS (2)
  - DRY EYE [None]
  - MACULOPATHY [None]
